FAERS Safety Report 7522957-2 (Version None)
Quarter: 2011Q2

REPORT INFORMATION
  Report Type: 
  Country: None (occurrence: None)
  Receive Date: 20110603
  Receipt Date: 20110523
  Transmission Date: 20111010
  Serious: Yes (Other)
  Sender: FDA-Public Use
  Company Number: US-BRISTOL-MYERS SQUIBB COMPANY-15769938

PATIENT
  Age: 48 Year
  Sex: Male

DRUGS (2)
  1. JANUMET [Concomitant]
  2. KOMBIGLYZE XR [Suspect]

REACTIONS (1)
  - ANAPHYLACTIC REACTION [None]
